FAERS Safety Report 19436887 (Version 1)
Quarter: 2021Q2

REPORT INFORMATION
  Report Type: Report from Study
  Country: ES (occurrence: ES)
  Receive Date: 20210619
  Receipt Date: 20210619
  Transmission Date: 20210717
  Serious: Yes (Other)
  Sender: FDA-Public Use
  Company Number: ES-AMGEN-ESPNI2021092625

PATIENT
  Sex: Female

DRUGS (2)
  1. AMG 510 [Suspect]
     Active Substance: AMG-510
     Dosage: UNK (DOSE DECREASED)
     Route: 065
  2. AMG 510 [Suspect]
     Active Substance: AMG-510
     Indication: NON-SMALL CELL LUNG CANCER
     Dosage: UNK
     Route: 065

REACTIONS (5)
  - Intestinal metastasis [Unknown]
  - Non-small cell lung cancer [Unknown]
  - Diarrhoea [Recovering/Resolving]
  - Diarrhoea haemorrhagic [Not Recovered/Not Resolved]
  - Transaminases abnormal [Unknown]

NARRATIVE: CASE EVENT DATE: 20210609
